FAERS Safety Report 5125303-7 (Version None)
Quarter: 2006Q4

REPORT INFORMATION
  Report Type: 
  Country: None (occurrence: None)
  Receive Date: 20061006
  Receipt Date: 20060927
  Transmission Date: 20070319
  Serious: Yes (Other)
  Sender: FDA-Public Use
  Company Number: 2006118372

PATIENT
  Age: 47 Year
  Sex: Female
  Weight: 56.6996 kg

DRUGS (7)
  1. ZOLOFT [Suspect]
     Indication: DEPRESSION
     Dosage: 50 MG (50 MG, 1 IN 1 D), ORAL
     Route: 048
     Dates: start: 20060101
  2. METFORMIN HCL [Suspect]
     Indication: DIABETES MELLITUS
     Dates: start: 20060101
  3. SEROQUEL [Concomitant]
  4. ZOCOR [Concomitant]
  5. TRAZODONE HCL [Concomitant]
  6. ECHINACEA/GOLDENSEAL (ECHINACEA, GOLDEN SEAL) [Concomitant]
  7. MULTIVITAMIN [Concomitant]

REACTIONS (4)
  - CHROMATURIA [None]
  - DIABETES MELLITUS [None]
  - DRUG SCREEN POSITIVE [None]
  - MENSTRUATION IRREGULAR [None]
